FAERS Safety Report 21306032 (Version 1)
Quarter: 2022Q3

REPORT INFORMATION
  Report Type: Spontaneous
  Country: US (occurrence: US)
  Receive Date: 20220908
  Receipt Date: 20220908
  Transmission Date: 20221027
  Serious: Yes (Other)
  Sender: FDA-Public Use
  Company Number: US-JNJFOC-20220855422

PATIENT
  Age: 88 Year
  Sex: Female

DRUGS (1)
  1. HALDOL [Suspect]
     Active Substance: HALOPERIDOL
     Indication: Product used for unknown indication
     Route: 065
     Dates: start: 20220726

REACTIONS (5)
  - Delirium [Not Recovered/Not Resolved]
  - Parkinsonism [Unknown]
  - Gait inability [Recovering/Resolving]
  - Cold sweat [Unknown]
  - Dysphagia [Unknown]
